FAERS Safety Report 24990403 (Version 1)
Quarter: 2025Q1

REPORT INFORMATION
  Report Type: Spontaneous
  Country: BE (occurrence: BE)
  Receive Date: 20250220
  Receipt Date: 20250220
  Transmission Date: 20250409
  Serious: Yes (Other)
  Sender: PFIZER
  Company Number: None

PATIENT
  Age: 56 Year
  Sex: Female
  Weight: 53 kg

DRUGS (11)
  1. ZITHROMAX [Interacting]
     Active Substance: AZITHROMYCIN DIHYDRATE
     Dosage: 500 MG, 1X/DAY
     Route: 048
     Dates: start: 20240715, end: 20241227
  2. ELEXACAFTOR\IVACAFTOR\TEZACAFTOR [Interacting]
     Active Substance: ELEXACAFTOR\IVACAFTOR\TEZACAFTOR
     Indication: Cystic fibrosis
     Dosage: 75 MG/50 MG/100 MG FILM-COATED TABLETS, 2 TABLETS 1X/DAY
     Route: 048
     Dates: start: 20240916, end: 20241227
  3. KALYDECO [Interacting]
     Active Substance: IVACAFTOR
     Indication: Cystic fibrosis
     Dosage: 1 TABLET 1X/DAY
     Route: 048
     Dates: start: 20240916, end: 20241227
  4. AMIKACIN [Suspect]
     Active Substance: AMIKACIN
     Route: 042
     Dates: start: 20240715, end: 20241007
  5. CLOFAZIMINE [Interacting]
     Active Substance: CLOFAZIMINE
     Dosage: 100 MG, 1X/DAY
     Route: 048
     Dates: start: 20240715, end: 20241227
  6. ETHAMBUTOL [Interacting]
     Active Substance: ETHAMBUTOL HYDROCHLORIDE
     Dosage: 800 MG, 1X/DAY
     Route: 048
     Dates: start: 20240715, end: 20241227
  7. NATRICLO [Concomitant]
     Dosage: UNK, 1X/DAY INH
     Dates: start: 20240722
  8. ALBUTEROL SULFATE [Concomitant]
     Active Substance: ALBUTEROL SULFATE
     Dosage: 0.5 ML, 1X/DAY, INH
     Dates: start: 20240722
  9. BEFACT FORTE [Concomitant]
     Dosage: 1 DF, 1X/DAY
     Route: 048
     Dates: start: 20240722
  10. SACCHAROMYCES CEREVISIAE [Concomitant]
     Active Substance: SACCHAROMYCES CEREVISIAE
     Dosage: 250 MG MAX 2X/DAY, PRD
     Route: 048
     Dates: start: 20240828
  11. DAFALGAN [Concomitant]
     Active Substance: ACETAMINOPHEN
     Dosage: 1 G, 3X/DAY, PRN
     Route: 048
     Dates: start: 20240722

REACTIONS (5)
  - Liver function test increased [Not Recovered/Not Resolved]
  - Hepatitis [Not Recovered/Not Resolved]
  - Drug interaction [Not Recovered/Not Resolved]
  - Product use issue [Unknown]
  - Off label use [Unknown]

NARRATIVE: CASE EVENT DATE: 20240715
